FAERS Safety Report 5252145-4 (Version None)
Quarter: 2007Q1

REPORT INFORMATION
  Report Type: 
  Country: None (occurrence: None)
  Receive Date: 20070226
  Receipt Date: 20070209
  Transmission Date: 20070707
  Serious: Yes (Death)
  Sender: FDA-Public Use
  Company Number: DSA_28626_2006

PATIENT
  Age: 65 Year
  Sex: Male

DRUGS (17)
  1. LORAZEPAM [Suspect]
     Indication: DEPRESSION
     Dosage: 2 MG Q DAY; PO
     Route: 048
     Dates: end: 20060611
  2. NIASPAN [Suspect]
     Indication: HIGH DENSITY LIPOPROTEIN DECREASED
     Dosage: 1000 MG ONCE;PO
     Route: 048
     Dates: start: 20060611, end: 20060611
  3. NIASPAN [Suspect]
     Indication: HYPERCHOLESTEROLAEMIA
     Dosage: 1000 MG ONCE;PO
     Route: 048
     Dates: start: 20060611, end: 20060611
  4. EFFEXOR XR [Suspect]
     Indication: DEPRESSION
     Dosage: 150 MG Q DAY; PO
     Route: 048
     Dates: end: 20060611
  5. ACTOS [Suspect]
     Indication: DIABETES MELLITUS
     Dosage: 45 MG Q DAY;PO
     Route: 048
     Dates: end: 20060611
  6. GLUCOPHAGE [Suspect]
     Indication: DIABETES MELLITUS
     Dosage: 1000 MG BID;PO
     Route: 048
     Dates: end: 20060611
  7. GLUCOTROL XL [Suspect]
     Indication: DIABETES MELLITUS
     Dosage: 10 MG Q DAY;PO
     Route: 048
     Dates: end: 20060611
  8. LANOXIN [Suspect]
     Indication: TACHYARRHYTHMIA
     Dosage: 0.375 MG Q DAY;PO
     Route: 048
     Dates: end: 20060611
  9. LANTUS [Suspect]
     Indication: DIABETES MELLITUS
     Dosage: 70 U Q DAY;SC
     Route: 058
     Dates: start: 20060609, end: 20060611
  10. LANTUS [Suspect]
     Indication: DIABETES MELLITUS
     Dosage: 65 U Q DAY;SC
     Route: 058
     Dates: end: 20060608
  11. LIPITOR [Suspect]
     Dosage: DF;
     Dates: end: 20060611
  12. TENORMIN [Suspect]
     Indication: TACHYARRHYTHMIA
     Dosage: 1000 MG Q DAY;PO
     Route: 048
     Dates: end: 20060611
  13. TRAZODONE HCL [Suspect]
     Indication: DEPRESSION
     Dosage: 200 MG Q DAY;PO
     Route: 048
     Dates: end: 20060611
  14. TRICOR [Suspect]
     Indication: DYSLIPIDAEMIA
     Dosage: 160 MG Q DAY;PO
     Route: 048
     Dates: end: 20060611
  15. WELLBUTRIN [Suspect]
     Indication: DEPRESSION
     Dosage: 300 MG Q DAY;PO
     Route: 048
     Dates: end: 20060611
  16. RISPERDAL [Suspect]
     Dosage: 3 MG; PO
     Route: 048
  17. MULTI-VITAMINS [Suspect]
     Dosage: DF;

REACTIONS (13)
  - ALANINE AMINOTRANSFERASE INCREASED [None]
  - ASPARTATE AMINOTRANSFERASE INCREASED [None]
  - BLOOD GLUCOSE INCREASED [None]
  - CARDIO-RESPIRATORY ARREST [None]
  - DEPRESSED LEVEL OF CONSCIOUSNESS [None]
  - FLUSHING [None]
  - GLYCOSYLATED HAEMOGLOBIN INCREASED [None]
  - HAEMOGLOBIN DECREASED [None]
  - HIGH DENSITY LIPOPROTEIN DECREASED [None]
  - INCORRECT DOSE ADMINISTERED [None]
  - MYOCARDIAL INFARCTION [None]
  - SKIN DISORDER [None]
  - ULTRASOUND SCAN ABNORMAL [None]
